FAERS Safety Report 5611248-2 (Version None)
Quarter: 2008Q1

REPORT INFORMATION
  Report Type: 
  Country: None (occurrence: None)
  Receive Date: 20080201
  Receipt Date: 20080109
  Transmission Date: 20080703
  Serious: Yes (Hospitalization, Disabling)
  Sender: FDA-Public Use
  Company Number: PHHY2007CN01159

PATIENT
  Age: 56 Year
  Sex: Female
  Weight: 52 kg

DRUGS (4)
  1. GLEEVEC [Suspect]
     Indication: CHRONIC MYELOID LEUKAEMIA
     Dosage: 400 MG/ DAY
     Route: 048
     Dates: start: 20061101
  2. GLEEVEC [Suspect]
     Dosage: 800 MG/ DAY
     Route: 048
  3. GLEEVEC [Suspect]
     Dosage: 200 MG/DAY
     Route: 048
  4. GLEEVEC [Suspect]
     Dosage: 300 MG, QD
     Route: 048

REACTIONS (8)
  - BLAST CRISIS IN MYELOGENOUS LEUKAEMIA [None]
  - CHRONIC MYELOID LEUKAEMIA [None]
  - CONJUNCTIVITIS [None]
  - DEAFNESS [None]
  - HYPOACUSIS [None]
  - PLATELET COUNT INCREASED [None]
  - PYREXIA [None]
  - WHITE BLOOD CELL COUNT INCREASED [None]
